FAERS Safety Report 8119947-8 (Version None)
Quarter: 2012Q1

REPORT INFORMATION
  Report Type: 
  Country: None (occurrence: None)
  Receive Date: 20120207
  Receipt Date: 20120203
  Transmission Date: 20120608
  Serious: No
  Sender: FDA-Public Use
  Company Number: US-BAYER-2012-011771

PATIENT
  Age: 19 Year
  Sex: Female
  Weight: 59 kg

DRUGS (3)
  1. ALEVE (CAPLET) [Suspect]
     Dosage: 1 TAB USED ONE TIME
     Route: 048
     Dates: start: 20120202, end: 20120202
  2. DIPHENHYDRAMINE HCL [Concomitant]
     Dosage: 25 MG, UNK
  3. VITAMIN TAB [Concomitant]

REACTIONS (4)
  - SWELLING FACE [None]
  - ERYTHEMA [None]
  - URTICARIA [None]
  - RASH [None]
